FAERS Safety Report 9521685 (Version 2)
Quarter: 2013Q4

REPORT INFORMATION
  Report Type: Spontaneous
  Country: CA (occurrence: None)
  Receive Date: 20130911
  Receipt Date: 20131105
  Transmission Date: 20140711
  Serious: Yes (Death)
  Sender: FDA-Public Use
  Company Number: 2013CA002435

PATIENT
  Age: 35 Year
  Sex: Male
  Weight: 75 kg

DRUGS (8)
  1. PONATINIB (AP24534) TABLET [Suspect]
     Indication: CHRONIC MYELOID LEUKAEMIA
     Route: 048
     Dates: start: 20120717
  2. ASA (ACETYLSALICYLIC ACID) [Concomitant]
  3. ATORVASTATIN (ATORVASTATIN) [Concomitant]
  4. HYDROCHLOORTHIAZIDE (HYDROCHLOROTHIAZIDE) [Concomitant]
  5. METOPROLOL (METOPROLOL TARTRATE) [Concomitant]
  6. NITROGLYCERIN (GLYCERYL TRINITRATE) [Concomitant]
  7. TICAGRELOR (TICAGRELOR) [Concomitant]
  8. RAMIPRIL (RAMIPRIL) [Concomitant]

REACTIONS (2)
  - Death [None]
  - Myocardial infarction [None]
